FAERS Safety Report 9784519 (Version 1)
Quarter: 2013Q4

REPORT INFORMATION
  Report Type: Spontaneous
  Country: GB (occurrence: GB)
  Receive Date: 20131226
  Receipt Date: 20131226
  Transmission Date: 20140711
  Serious: Yes (Other)
  Sender: FDA-Public Use
  Company Number: GB-B.I. PHARMACEUTICALS,INC./RIDGEFIELD-2013-BI-43085UK

PATIENT
  Age: 53 Year
  Sex: Female

DRUGS (5)
  1. SPIRIVA [Suspect]
     Dosage: 18 MCG
     Route: 055
     Dates: start: 20131206, end: 20131209
  2. ANTIHISTAMINES [Concomitant]
  3. ATROVENT [Concomitant]
  4. SERETIDE [Concomitant]
     Route: 055
  5. VENTOLIN [Concomitant]

REACTIONS (2)
  - Intestinal obstruction [Recovered/Resolved]
  - Abdominal distension [Unknown]
